FAERS Safety Report 17340165 (Version 1)
Quarter: 2020Q1

REPORT INFORMATION
  Report Type: Spontaneous
  Country: US (occurrence: US)
  Receive Date: 20200114
  Receipt Date: 20200114
  Transmission Date: 20200409
  Serious: No
  Sender: FDA-Public Use
  Company Number: None

PATIENT
  Age: 52 Year
  Sex: Female

DRUGS (1)
  1. OCALIVA [Suspect]
     Active Substance: OBETICHOLIC ACID
     Indication: PRIMARY BILIARY CHOLANGITIS
     Route: 048
     Dates: start: 20191227

REACTIONS (9)
  - Pruritus [None]
  - Fatigue [None]
  - Diarrhoea [None]
  - Impatience [None]
  - Poor quality sleep [None]
  - Mood altered [None]
  - Decreased appetite [None]
  - Disturbance in attention [None]
  - Weight decreased [None]

NARRATIVE: CASE EVENT DATE: 20191229
